FAERS Safety Report 20161658 (Version 5)
Quarter: 2022Q4

REPORT INFORMATION
  Report Type: Report from Study
  Country: ES (occurrence: ES)
  Receive Date: 20211208
  Receipt Date: 20221109
  Transmission Date: 20230113
  Serious: Yes (Hospitalization)
  Sender: FDA-Public Use
  Company Number: ES-TAKEDA-2021TUS077174

PATIENT
  Age: 13 Year
  Sex: Male

DRUGS (11)
  1. IDURSULFASE [Suspect]
     Active Substance: IDURSULFASE
     Indication: Mucopolysaccharidosis II
     Dosage: UNK
     Route: 042
     Dates: start: 20110927
  2. IDURSULFASE [Suspect]
     Active Substance: IDURSULFASE
     Dosage: 1 MILLIGRAM/KILOGRAM, Q2WEEKS
     Route: 042
     Dates: start: 20200825
  3. METHYLPHENIDATE [Concomitant]
     Active Substance: METHYLPHENIDATE
     Dosage: UNK
     Route: 048
  4. LEVOMEPROMAZINE [Concomitant]
     Active Substance: LEVOMEPROMAZINE
     Indication: Anxiety
     Dosage: UNK
     Route: 048
  5. RISPERIDONE [Concomitant]
     Active Substance: RISPERIDONE
     Indication: Psychotic disorder
     Dosage: UNK
     Route: 048
  6. MELATONIN [Concomitant]
     Active Substance: MELATONIN
     Indication: Insomnia
     Dosage: UNK
     Route: 048
     Dates: start: 20160307
  7. CEFAZOLIN [Concomitant]
     Active Substance: CEFAZOLIN
     Indication: Epiphysiodesis
     Dosage: UNK
     Route: 048
     Dates: start: 20201019, end: 20201019
  8. BUPIVACAINE [Concomitant]
     Active Substance: BUPIVACAINE
     Indication: Epiphysiodesis
     Dosage: UNK
     Route: 050
     Dates: start: 20201019, end: 20201030
  9. ACETAMINOPHEN [Concomitant]
     Active Substance: ACETAMINOPHEN
     Indication: Epiphysiodesis
     Dosage: UNK
     Route: 048
     Dates: start: 20201019
  10. IBUPROFEN [Concomitant]
     Active Substance: IBUPROFEN
     Indication: Epiphysiodesis
     Dosage: UNK
     Route: 048
     Dates: start: 20201019
  11. AMOXICILLIN [Concomitant]
     Active Substance: AMOXICILLIN
     Indication: Wound dehiscence
     Dosage: UNK
     Route: 048
     Dates: start: 20211122, end: 20211129

REACTIONS (2)
  - Wound dehiscence [Recovered/Resolved]
  - Wound [Recovered/Resolved]

NARRATIVE: CASE EVENT DATE: 20211121
